FAERS Safety Report 13378290 (Version 1)
Quarter: 2017Q1

REPORT INFORMATION
  Report Type: Spontaneous
  Country: DE (occurrence: DE)
  Receive Date: 20170328
  Receipt Date: 20170328
  Transmission Date: 20170429
  Serious: Yes (Other)
  Sender: FDA-Public Use
  Company Number: DE-MYLANLABS-2017M1019309

PATIENT

DRUGS (4)
  1. DOXORUBICIN [Suspect]
     Active Substance: DOXORUBICIN
     Indication: OVARIAN EPITHELIAL CANCER
     Dosage: 1.5 MG/M2 VIA PIPAC IN A CYCLE AT EVERY 5-12 WEEKS
     Route: 033
     Dates: start: 201410
  2. CISPLATIN. [Suspect]
     Active Substance: CISPLATIN
     Indication: OVARIAN EPITHELIAL CANCER
     Dosage: 7.5 MG/M2 VIA PIPAC IN A CYCLE AT EVERY 5-12 WEEKS
     Route: 033
     Dates: start: 201410
  3. TAMOXIFEN [Concomitant]
     Active Substance: TAMOXIFEN
     Indication: OVARIAN EPITHELIAL CANCER
     Route: 065
     Dates: start: 201510
  4. CARBOPLATIN. [Concomitant]
     Active Substance: CARBOPLATIN
     Indication: OVARIAN EPITHELIAL CANCER
     Dosage: AUC 3; ON DAY 2 AFTER PIPAC
     Route: 042
     Dates: start: 201605

REACTIONS (4)
  - Off label use [Unknown]
  - Pleural effusion [Recovering/Resolving]
  - Abdominal pain [Unknown]
  - Pyrexia [Unknown]
